FAERS Safety Report 9239909 (Version 3)
Quarter: 2013Q3

REPORT INFORMATION
  Report Type: Report from Study
  Country: PL (occurrence: PL)
  Receive Date: 20130418
  Receipt Date: 20130723
  Transmission Date: 20140515
  Serious: Yes (Hospitalization)
  Sender: FDA-Public Use
  Company Number: PL-ROCHE-1215422

PATIENT
  Age: 36 Year
  Sex: Male
  Weight: 72 kg

DRUGS (3)
  1. PEG-INTERFERON ALFA 2A [Suspect]
     Indication: CHRONIC HEPATITIS C
     Route: 058
     Dates: start: 20120803, end: 20130111
  2. RIBAVIRIN [Suspect]
     Indication: CHRONIC HEPATITIS C
     Route: 048
     Dates: start: 20120803, end: 20130116
  3. BLINDED TMC435 [Suspect]
     Indication: CHRONIC HEPATITIS C
     Dosage: 1 CAPSULE ONCE DAY AND 6 TABLET THREE TIMES IN DAY
     Route: 048
     Dates: start: 20120803, end: 20121010

REACTIONS (1)
  - Neutropenia [Recovered/Resolved]
